FAERS Safety Report 8576125-6 (Version None)
Quarter: 2012Q3

REPORT INFORMATION
  Report Type: 
  Country: None (occurrence: None)
  Receive Date: 20120807
  Receipt Date: 20120726
  Transmission Date: 20120928
  Serious: Yes (Hospitalization)
  Sender: FDA-Public Use
  Company Number: FR-CELGENEUS-056-21880-12070009

PATIENT
  Sex: Male
  Weight: 80 kg

DRUGS (8)
  1. VIDAZA [Suspect]
     Dosage: 1330 MILLIGRAM
     Route: 065
     Dates: start: 20120418, end: 20120424
  2. CCNU [Suspect]
     Route: 048
     Dates: start: 20120418, end: 20120418
  3. BISOPROLOL FUMARATE [Concomitant]
     Indication: HYPERTENSION
     Route: 065
  4. IDARUBICIN HCL [Suspect]
     Route: 041
     Dates: start: 20120418, end: 20120422
  5. ROCEPHIN [Concomitant]
     Route: 065
  6. REVLIMID [Suspect]
     Dosage: 10 MILLIGRAM
     Route: 048
     Dates: start: 20120618, end: 20120628
  7. AMIKACIN [Concomitant]
     Route: 065
  8. CYTARABINE [Suspect]
     Route: 041
     Dates: start: 20120418, end: 20120424

REACTIONS (4)
  - THROMBOCYTOPENIA [None]
  - FEBRILE BONE MARROW APLASIA [None]
  - ANAEMIA [None]
  - ERYTHEMA [None]
